FAERS Safety Report 8823266 (Version 2)
Quarter: 2012Q4

REPORT INFORMATION
  Report Type: 
  Country: FR (occurrence: FR)
  Receive Date: 20121003
  Receipt Date: 20121023
  Transmission Date: 20130627
  Serious: Yes (Death, Life-Threatening, Hospitalization)
  Sender: FDA-Public Use
  Company Number: FR-GLAXOSMITHKLINE-B0832203A

PATIENT
  Age: 93 Year
  Sex: Female
  Weight: 54 kg

DRUGS (7)
  1. ARIXTRA [Suspect]
     Indication: PERIPHERAL ARTERIAL OCCLUSIVE DISEASE
     Dosage: 7.5MG Per day
     Route: 058
     Dates: start: 201207, end: 20120815
  2. KARDEGIC [Suspect]
     Indication: ISCHAEMIC HEART DISEASE PROPHYLAXIS
     Dosage: 75MG Per day
     Route: 048
     Dates: start: 201202, end: 20120815
  3. BISOPROLOL [Concomitant]
     Indication: CARDIAC FAILURE
     Dosage: 7.5MG Per day
     Route: 048
     Dates: start: 2009, end: 20120816
  4. PERINDOPRIL [Concomitant]
     Indication: CARDIAC FAILURE
     Dosage: 4MG Per day
     Route: 048
     Dates: start: 201202, end: 20120816
  5. SPIRONOLACTONE [Concomitant]
     Indication: CARDIAC FAILURE
     Dosage: 50MG Per day
     Route: 048
     Dates: start: 201205, end: 20120816
  6. FORLAX [Concomitant]
     Indication: CARDIAC FAILURE
     Dosage: 2UNIT per day
     Route: 048
     Dates: start: 2009, end: 20120816
  7. COUMADINE [Concomitant]
     Dates: start: 201202, end: 201207

REACTIONS (9)
  - Subdural haematoma [Fatal]
  - Cerebellar haematoma [Fatal]
  - Subarachnoid haemorrhage [Fatal]
  - Petechiae [Fatal]
  - Haemothorax [Fatal]
  - Drug interaction [Unknown]
  - Confusional state [Unknown]
  - Coma [Unknown]
  - Off label use [Unknown]
